FAERS Safety Report 7894099-8 (Version None)
Quarter: 2011Q4

REPORT INFORMATION
  Report Type: 
  Country: None (occurrence: None)
  Receive Date: 20111104
  Receipt Date: 20111101
  Transmission Date: 20120403
  Serious: Yes (Other)
  Sender: FDA-Public Use
  Company Number: DK-TEVA-306017ISR

PATIENT
  Age: 75 Year
  Sex: Female

DRUGS (5)
  1. CYCLOSPORINE [Suspect]
     Dosage: 2-3 MG/KG
  2. CORTICOSTEROIDS [Suspect]
     Indication: DERMATITIS ATOPIC
     Dosage: 1-2 MONTH COURSES OF CORTICOSTEROIDS FOR PERIODS OF EXACERBATION
  3. CYCLOSPORINE [Suspect]
     Indication: DERMATITIS ATOPIC
     Dosage: 1.5-2.5 MG/KG/DAY
  4. MYCOPHENOLIC ACID [Suspect]
     Indication: DERMATITIS ATOPIC
  5. AZATHIOPRINE [Suspect]
     Indication: DERMATITIS ATOPIC

REACTIONS (1)
  - MYCOSIS FUNGOIDES [None]
